FAERS Safety Report 7124944-5 (Version None)
Quarter: 2010Q4

REPORT INFORMATION
  Report Type: 
  Country: None (occurrence: None)
  Receive Date: 20101123
  Receipt Date: 20101123
  Transmission Date: 20110411
  Serious: No
  Sender: FDA-Public Use
  Company Number: None

PATIENT
  Sex: Female

DRUGS (1)
  1. HUMIRA [Suspect]
     Dosage: 40 MG/0.8ML SC   INJECT 40 MG (0.8ML) SUBCUTANEOUSLY  EVERY WEEK ^REFRIGERATE^
     Route: 058

REACTIONS (2)
  - FATIGUE [None]
  - MYALGIA [None]
